FAERS Safety Report 10231251 (Version 3)
Quarter: 2014Q3

REPORT INFORMATION
  Report Type: Spontaneous
  Country: US (occurrence: US)
  Receive Date: 20140611
  Receipt Date: 20140805
  Transmission Date: 20150326
  Serious: Yes (Other)
  Sender: FDA-Public Use
  Company Number: US-GLAXOSMITHKLINE-A1067248A

PATIENT
  Age: 64 Year
  Sex: Female

DRUGS (3)
  1. SUPPLEMENT [Concomitant]
     Active Substance: UNSPECIFIED INGREDIENT
  2. MYSOLINE [Concomitant]
     Active Substance: PRIMIDONE
  3. LAMICTAL XR [Suspect]
     Active Substance: LAMOTRIGINE
     Indication: CONVULSION
     Dosage: 750MG AT NIGHT
     Route: 048
     Dates: start: 20091001

REACTIONS (6)
  - Humerus fracture [Recovering/Resolving]
  - Road traffic accident [Recovering/Resolving]
  - Musculoskeletal discomfort [Not Recovered/Not Resolved]
  - Back disorder [Not Recovered/Not Resolved]
  - Fall [Recovering/Resolving]
  - Muscular weakness [Recovering/Resolving]

NARRATIVE: CASE EVENT DATE: 201401
